FAERS Safety Report 10198761 (Version 2)
Quarter: 2014Q2

REPORT INFORMATION
  Report Type: Spontaneous
  Country: US (occurrence: US)
  Receive Date: 20140527
  Receipt Date: 20140530
  Transmission Date: 20141212
  Serious: Yes (Hospitalization)
  Sender: FDA-Public Use
  Company Number: US-INCYTE CORPORATION-2014IN001371

PATIENT
  Sex: Female

DRUGS (1)
  1. JAKAFI [Suspect]
     Indication: MYELOFIBROSIS
     Dosage: 5 MG, BID
     Route: 048

REACTIONS (4)
  - Hospitalisation [Unknown]
  - Pain [Unknown]
  - Abasia [Unknown]
  - Splenomegaly [Unknown]
